FAERS Safety Report 11539009 (Version 2)
Quarter: 2015Q4

REPORT INFORMATION
  Report Type: Spontaneous
  Country: DE (occurrence: DE)
  Receive Date: 20150923
  Receipt Date: 20151019
  Transmission Date: 20160304
  Serious: Yes (Hospitalization)
  Sender: FDA-Public Use
  Company Number: DE-ROCHE-1637244

PATIENT
  Sex: Female

DRUGS (3)
  1. MABTHERA [Suspect]
     Active Substance: RITUXIMAB
     Dosage: MONOTHERAPY
     Route: 042
     Dates: start: 201406
  2. BENDAMUSTINE [Concomitant]
     Active Substance: BENDAMUSTINE
     Route: 065
     Dates: start: 201401
  3. MABTHERA [Suspect]
     Active Substance: RITUXIMAB
     Indication: NON-HODGKIN^S LYMPHOMA
     Route: 042
     Dates: start: 201401

REACTIONS (12)
  - Cough [Not Recovered/Not Resolved]
  - Rash [Recovered/Resolved]
  - Fatigue [Unknown]
  - Chest discomfort [Not Recovered/Not Resolved]
  - Ear congestion [Unknown]
  - Migraine [Unknown]
  - Sinus congestion [Unknown]
  - Blood albumin decreased [Unknown]
  - Seasonal allergy [Recovered/Resolved]
  - Rhinorrhoea [Recovered/Resolved]
  - Fluid retention [Not Recovered/Not Resolved]
  - Pruritus [Recovered/Resolved]
